FAERS Safety Report 26176514 (Version 1)
Quarter: 2025Q4

REPORT INFORMATION
  Report Type: Spontaneous
  Country: CA (occurrence: CA)
  Receive Date: 20251218
  Receipt Date: 20251218
  Transmission Date: 20260117
  Serious: Yes (Hospitalization)
  Sender: NOVO NORDISK
  Company Number: None

PATIENT
  Age: 64 Year
  Sex: Female

DRUGS (1)
  1. OZEMPIC [Suspect]
     Active Substance: SEMAGLUTIDE
     Indication: Product used for unknown indication
     Dosage: 1 MG, QW

REACTIONS (4)
  - Pain [Recovered/Resolved]
  - Small intestinal obstruction [Recovered/Resolved]
  - Vomiting [Recovered/Resolved]
  - Wrong technique in product usage process [Unknown]
